FAERS Safety Report 6653467-2 (Version None)
Quarter: 2010Q1

REPORT INFORMATION
  Report Type: 
  Country: None (occurrence: None)
  Receive Date: 20100326
  Receipt Date: 20100315
  Transmission Date: 20100710
  Serious: Yes (Hospitalization)
  Sender: FDA-Public Use
  Company Number: US-JNJFOC-20100306095

PATIENT
  Age: 68 Year
  Sex: Female
  Weight: 128.82 kg

DRUGS (10)
  1. TYLENOL [Suspect]
     Route: 048
  2. TYLENOL [Suspect]
     Indication: ARTHRITIS
     Route: 048
  3. CORAL CALCIUM [Concomitant]
     Indication: PROPHYLAXIS
  4. TOCOPHEROL CONCENTRATE CAP [Concomitant]
     Indication: MEDICAL DIET
  5. VITAMIN TAB [Concomitant]
     Indication: MEDICAL DIET
  6. VITAMIN D [Concomitant]
     Indication: MEDICAL DIET
  7. GARLIC [Concomitant]
     Indication: MEDICAL DIET
  8. FISH OIL [Concomitant]
     Indication: MEDICAL DIET
  9. TUMS [Concomitant]
     Indication: MINERAL SUPPLEMENTATION
  10. FOSAMAX [Concomitant]
     Indication: OSTEOPOROSIS

REACTIONS (4)
  - DIPLEGIA [None]
  - PRODUCT QUALITY ISSUE [None]
  - THROMBOSIS [None]
  - VOMITING [None]
